FAERS Safety Report 4652854-1 (Version None)
Quarter: 2005Q2

REPORT INFORMATION
  Report Type: 
  Country: None (occurrence: None)
  Receive Date: 20050502
  Receipt Date: 20050422
  Transmission Date: 20051028
  Serious: Yes (Life-Threatening, Hospitalization)
  Sender: FDA-Public Use
  Company Number: 106464ISR

PATIENT
  Age: 78 Year
  Sex: Female

DRUGS (8)
  1. FLUOROURACIL [Suspect]
     Indication: BREAST CANCER
     Dosage: 935 MILLIGRAM, INTRAVENOUS(NOS)
     Route: 042
     Dates: start: 20030123, end: 20030508
  2. FLUOROURACIL [Suspect]
     Indication: METASTASES TO BONE
     Dosage: 935 MILLIGRAM, INTRAVENOUS(NOS)
     Route: 042
     Dates: start: 20030123, end: 20030508
  3. CYCLOPHOSPHAMIDE [Suspect]
     Indication: BREAST CANCER
     Dosage: 935 MILLIGRAM, INTRAVENOUS (NOS)
     Route: 042
     Dates: start: 20030123, end: 20030508
  4. CYCLOPHOSPHAMIDE [Suspect]
     Indication: METASTASES TO BONE
     Dosage: 935 MILLIGRAM, INTRAVENOUS (NOS)
     Route: 042
     Dates: start: 20030123, end: 20030508
  5. EPIRUBICIN [Suspect]
     Indication: BREAST CANCER
     Dosage: 140 MILLIGRAM, INTRAVENOUS (NOS)
     Route: 042
     Dates: start: 20030123, end: 20030508
  6. EPIRUBICIN [Suspect]
     Indication: METASTASES TO BONE
     Dosage: 140 MILLIGRAM, INTRAVENOUS (NOS)
     Route: 042
     Dates: start: 20030123, end: 20030508
  7. ANASTROZOLE [Suspect]
     Indication: BREAST CANCER
     Dosage: ORAL
     Route: 048
     Dates: start: 20031115
  8. ANASTROZOLE [Suspect]
     Indication: METASTASES TO BONE
     Dosage: ORAL
     Route: 048
     Dates: start: 20031115

REACTIONS (1)
  - ACUTE PROMYELOCYTIC LEUKAEMIA [None]
